FAERS Safety Report 9636129 (Version 2)
Quarter: 2013Q4

REPORT INFORMATION
  Report Type: Report from Study
  Country: DE (occurrence: DE)
  Receive Date: 20131021
  Receipt Date: 20131114
  Transmission Date: 20140711
  Serious: Yes (Hospitalization)
  Sender: FDA-Public Use
  Company Number: DE-AMGEN-DEUCT2013073574

PATIENT
  Age: 75 Year
  Sex: Male

DRUGS (9)
  1. ETANERCEPT [Suspect]
     Indication: PRODUCT USED FOR UNKNOWN INDICATION
     Dosage: 50 MG, WEEKLY (EVERY 7 DAYS)
     Route: 065
  2. MTX                                /00113801/ [Concomitant]
     Dosage: 15 MG, WEEKLY
  3. GABAPENTIN [Concomitant]
     Dosage: UNK
  4. KELTICAN                           /00619201/ [Concomitant]
     Dosage: UNK
  5. PANTOZOL                           /01263204/ [Concomitant]
     Dosage: UNK
  6. TOREM                              /01036501/ [Concomitant]
     Dosage: UNK
  7. VITAMIN B12                        /00056201/ [Concomitant]
     Dosage: UNK
  8. AMLODIPINE [Concomitant]
     Dosage: UNK
  9. DELIX                              /00885601/ [Concomitant]
     Dosage: UNK

REACTIONS (1)
  - Chronic obstructive pulmonary disease [Recovered/Resolved]
